FAERS Safety Report 7381952-7 (Version None)
Quarter: 2011Q1

REPORT INFORMATION
  Report Type: 
  Country: None (occurrence: None)
  Receive Date: 20110329
  Receipt Date: 20110325
  Transmission Date: 20110831
  Serious: Yes (Death, Hospitalization)
  Sender: FDA-Public Use
  Company Number: US-MEDIMMUNE-MEDI-0012980

PATIENT
  Sex: Female

DRUGS (1)
  1. SYNAGIS [Suspect]
     Dates: end: 20110312

REACTIONS (4)
  - CYANOSIS [None]
  - DYSPNOEA [None]
  - UNRESPONSIVE TO STIMULI [None]
  - INFLUENZA A VIRUS TEST POSITIVE [None]
